FAERS Safety Report 22005540 (Version 2)
Quarter: 2023Q2

REPORT INFORMATION
  Report Type: Spontaneous
  Country: US (occurrence: US)
  Receive Date: 20230217
  Receipt Date: 20230407
  Transmission Date: 20230722
  Serious: No
  Sender: FDA-Public Use
  Company Number: US-PFIZER INC-202300068904

PATIENT
  Age: 82 Year
  Sex: Male
  Weight: 86.168 kg

DRUGS (4)
  1. PAXLOVID [Suspect]
     Active Substance: NIRMATRELVIR\RITONAVIR
     Indication: COVID-19 treatment
     Dosage: TWO WHITE TABLETS
     Route: 048
     Dates: start: 20230212, end: 20230212
  2. PAXLOVID [Suspect]
     Active Substance: NIRMATRELVIR\RITONAVIR
     Dosage: ONE PINK TABLET AND ONE WHITE TABLET TWICE A DAY
     Route: 048
     Dates: start: 20230213, end: 20230213
  3. PAXLOVID [Suspect]
     Active Substance: NIRMATRELVIR\RITONAVIR
     Dosage: 3 PINK TABLETS
     Route: 048
     Dates: start: 20230214
  4. LOSARTAN [Concomitant]
     Active Substance: LOSARTAN
     Dosage: 100-12.5MG

REACTIONS (4)
  - Incorrect dose administered [Unknown]
  - Intentional product misuse [Unknown]
  - COVID-19 [Unknown]
  - Disease recurrence [Unknown]

NARRATIVE: CASE EVENT DATE: 20230212
